FAERS Safety Report 23531855 (Version 1)
Quarter: 2024Q1

REPORT INFORMATION
  Report Type: Spontaneous
  Country: US (occurrence: US)
  Receive Date: 20240216
  Receipt Date: 20240216
  Transmission Date: 20240409
  Serious: No
  Sender: FDA-Public Use
  Company Number: US-PFIZER INC-202200624984

PATIENT
  Age: 35 Year
  Sex: Male

DRUGS (6)
  1. BRAFTOVI [Suspect]
     Active Substance: ENCORAFENIB
     Indication: Malignant neoplasm of spinal cord
     Dosage: TAKE 6 CAPSULE (450 MG TOTAL) 1 TIME A DAY
     Route: 048
  2. BRAFTOVI [Suspect]
     Active Substance: ENCORAFENIB
     Indication: Brain neoplasm malignant
     Dosage: 75 MG
  3. BRAFTOVI [Suspect]
     Active Substance: ENCORAFENIB
     Indication: Astrocytoma
  4. MEKTOVI [Suspect]
     Active Substance: BINIMETINIB
     Indication: Malignant neoplasm of spinal cord
     Dosage: 45 MG
  5. MEKTOVI [Suspect]
     Active Substance: BINIMETINIB
     Indication: Brain neoplasm malignant
     Dosage: TAKE 3 TABLETS (45 MG TOTAL) IN THE MORNING AND 3 TABLETS (45 MG TOTAL) BEFORE BEDTIME
     Route: 048
  6. MEKTOVI [Suspect]
     Active Substance: BINIMETINIB
     Indication: Astrocytoma
     Dosage: 15 MG

REACTIONS (3)
  - Off label use [Unknown]
  - Drug effective for unapproved indication [Unknown]
  - Neoplasm progression [Unknown]
